FAERS Safety Report 6309716-3 (Version None)
Quarter: 2009Q3

REPORT INFORMATION
  Report Type: 
  Country: None (occurrence: None)
  Receive Date: 20090814
  Receipt Date: 20090810
  Transmission Date: 20100115
  Serious: Yes (Other)
  Sender: FDA-Public Use
  Company Number: PHHY2009SE34030

PATIENT
  Age: 1 Year
  Sex: Male

DRUGS (1)
  1. DICLOFENAC [Suspect]
     Indication: PAIN
     Dosage: 1 DOSE AT THE START OF OPERATION

REACTIONS (4)
  - BRADYCARDIA [None]
  - CARDIAC MASSAGE [None]
  - LARYNGOSPASM [None]
  - OXYGEN SATURATION DECREASED [None]
